FAERS Safety Report 25700061 (Version 1)
Quarter: 2025Q3

REPORT INFORMATION
  Report Type: Spontaneous
  Country: US (occurrence: US)
  Receive Date: 20250819
  Receipt Date: 20250819
  Transmission Date: 20251020
  Serious: Yes (Other)
  Sender: RADIUS PHARM
  Company Number: US-RADIUS HEALTH INC.-US-RADIUS-25052419

PATIENT
  Sex: Female

DRUGS (4)
  1. TYMLOS [Suspect]
     Active Substance: ABALOPARATIDE
     Indication: Osteogenesis imperfecta
     Dosage: 80 MICROGRAM, QD
     Route: 058
     Dates: start: 202407
  2. TYMLOS [Suspect]
     Active Substance: ABALOPARATIDE
     Indication: Senile osteoporosis
  3. ESTROGEN NOS [Suspect]
     Active Substance: ESTROGENS
     Indication: Product used for unknown indication
     Route: 065
  4. PROGESTERONE [Suspect]
     Active Substance: PROGESTERONE
     Indication: Product used for unknown indication
     Route: 065

REACTIONS (5)
  - Glaucoma [Unknown]
  - Blood alkaline phosphatase abnormal [Unknown]
  - Blood test abnormal [Recovering/Resolving]
  - Intentional dose omission [Unknown]
  - Off label use [Unknown]
